FAERS Safety Report 24319811 (Version 1)
Quarter: 2024Q3

REPORT INFORMATION
  Report Type: Spontaneous
  Country: IT (occurrence: IT)
  Receive Date: 20240914
  Receipt Date: 20240914
  Transmission Date: 20241017
  Serious: Yes (Hospitalization)
  Sender: ROCHE
  Company Number: IT-ROCHE-10000072740

PATIENT
  Age: 66 Year
  Sex: Female

DRUGS (1)
  1. RITUXIMAB [Suspect]
     Active Substance: RITUXIMAB
     Indication: Splenic marginal zone lymphoma
     Route: 042

REACTIONS (4)
  - Thrombocytopenia [Recovered/Resolved]
  - Infusion related reaction [Unknown]
  - Anaphylactic reaction [Recovered/Resolved]
  - Acute kidney injury [Recovered/Resolved]
